FAERS Safety Report 8236975-2 (Version None)
Quarter: 2012Q1

REPORT INFORMATION
  Report Type: 
  Country: None (occurrence: None)
  Receive Date: 20120327
  Receipt Date: 20120320
  Transmission Date: 20120608
  Serious: Yes (Disabling, Other)
  Sender: FDA-Public Use
  Company Number: PHHY2012FR015111

PATIENT
  Sex: Female
  Weight: 50 kg

DRUGS (6)
  1. FEMARA [Suspect]
     Indication: BREAST CANCER
     Dosage: 2.5 MG, QD
     Dates: start: 20111230, end: 20120210
  2. CORTISONE ACETATE [Concomitant]
  3. OLMESARTAN MEDOXOMIL [Concomitant]
     Indication: HYPERTENSION
     Dosage: 1 DF, DAILY FOR 4 MONTHS
  4. ACETAMINOPHEN AND CODEINE PHOSPHATE [Concomitant]
  5. ACETAMINOPHEN W/ PROPOXYPHENE HCL [Concomitant]
  6. LEVOTHYROXINE SODIUM [Concomitant]
     Indication: HYPOTHYROIDISM
     Dosage: 50 UG, DAILY FOR A YEAR

REACTIONS (7)
  - ARTHRALGIA [None]
  - ASTHENIA [None]
  - WEIGHT DECREASED [None]
  - DECREASED APPETITE [None]
  - TINNITUS [None]
  - DIZZINESS [None]
  - OSTEOARTHRITIS [None]
